FAERS Safety Report 5866043-6 (Version None)
Quarter: 2008Q3

REPORT INFORMATION
  Report Type: 
  Country: None (occurrence: None)
  Receive Date: 20080829
  Receipt Date: 20080825
  Transmission Date: 20090109
  Serious: Yes (Hospitalization, Other)
  Sender: FDA-Public Use
  Company Number: ES-BOEHRINGER INGELHEIM GMBH, GERMANY-2008-BP-13326RO

PATIENT
  Age: 42 Year
  Sex: Male

DRUGS (10)
  1. CYCLOPHOSPHAMIDE [Suspect]
     Indication: BONE MARROW CONDITIONING REGIMEN
  2. METHOTREXATE SODIUM [Suspect]
     Indication: PROPHYLAXIS AGAINST GRAFT VERSUS HOST DISEASE
  3. BUSULFAN [Suspect]
     Indication: BONE MARROW CONDITIONING REGIMEN
     Route: 048
  4. CYCLOSPORINE [Suspect]
     Indication: PROPHYLAXIS AGAINST GRAFT VERSUS HOST DISEASE
  5. ISONIAZID [Suspect]
     Indication: TUBERCULIN TEST POSITIVE
     Route: 048
  6. METHYLPREDNISOLONE 16MG TAB [Concomitant]
     Indication: ACUTE GRAFT VERSUS HOST DISEASE IN INTESTINE
  7. GANCICLOVIR [Concomitant]
     Indication: CYTOMEGALOVIRUS ANTIGEN POSITIVE
  8. OPIATE DERIVATIVES [Concomitant]
     Indication: ABDOMINAL PAIN
  9. RIFAMPICIN [Concomitant]
     Indication: TUBERCULOSIS TEST POSITIVE
  10. PYRAZINAMIDE [Concomitant]
     Indication: TUBERCULOSIS TEST POSITIVE

REACTIONS (4)
  - ACUTE GRAFT VERSUS HOST DISEASE IN INTESTINE [None]
  - CYTOMEGALOVIRUS ANTIGEN POSITIVE [None]
  - MESENTERIC OCCLUSION [None]
  - TUBERCULOSIS TEST POSITIVE [None]
